FAERS Safety Report 10224455 (Version 1)
Quarter: 2014Q2

REPORT INFORMATION
  Report Type: Spontaneous
  Country: US (occurrence: US)
  Receive Date: 20140609
  Receipt Date: 20140609
  Transmission Date: 20141212
  Serious: No
  Sender: FDA-Public Use
  Company Number: US-TEVA-486950USA

PATIENT
  Age: 34 Year
  Sex: Female
  Weight: 75.82 kg

DRUGS (4)
  1. PARAGARD 380A [Suspect]
     Indication: CONTRACEPTION
     Route: 015
     Dates: start: 20140218
  2. TOPAMAX [Concomitant]
     Indication: MIGRAINE
  3. LEXAPRO [Concomitant]
     Indication: PRODUCT USED FOR UNKNOWN INDICATION
  4. WELLBUTRIN [Concomitant]
     Indication: BIPOLAR DISORDER

REACTIONS (3)
  - Cervical dysplasia [Not Recovered/Not Resolved]
  - Menstruation delayed [Recovered/Resolved]
  - Device expulsion [Recovered/Resolved]
